FAERS Safety Report 7635549-1 (Version None)
Quarter: 2011Q3

REPORT INFORMATION
  Report Type: 
  Country: None (occurrence: None)
  Receive Date: 20110726
  Receipt Date: 20110715
  Transmission Date: 20111222
  Serious: Yes (Other)
  Sender: FDA-Public Use
  Company Number: CA-NOVOPROD-329826

PATIENT
  Sex: Female
  Weight: 81.4 kg

DRUGS (2)
  1. LIRAGLUTIDE FLEXPEN [Suspect]
     Indication: TYPE 2 DIABETES MELLITUS
     Dosage: 1.8 MG, QD
     Route: 058
     Dates: start: 20110310, end: 20110319
  2. ATENOLOL [Concomitant]
     Indication: ARRHYTHMIA

REACTIONS (4)
  - FATIGUE [None]
  - DIARRHOEA [None]
  - HEADACHE [None]
  - NAUSEA [None]
